FAERS Safety Report 9007563 (Version 1)
Quarter: 2013Q1

REPORT INFORMATION
  Report Type: Spontaneous
  Country: US (occurrence: US)
  Receive Date: 20130111
  Receipt Date: 20130111
  Transmission Date: 20140127
  Serious: Yes (Other)
  Sender: FDA-Public Use
  Company Number: US-009507513-0911USA00552

PATIENT
  Age: 45 Year
  Sex: Female
  Weight: 58.97 kg

DRUGS (1)
  1. SINGULAIR [Suspect]
     Indication: ASTHMA
     Dosage: 10 MG, HS
     Route: 048
     Dates: start: 20090327, end: 20090404

REACTIONS (9)
  - Feeling abnormal [Unknown]
  - Middle insomnia [Unknown]
  - Paranoia [Unknown]
  - Heart rate increased [Unknown]
  - Disorientation [Unknown]
  - Nausea [Unknown]
  - Dizziness [Unknown]
  - Palpitations [Unknown]
  - Insomnia [Unknown]
